FAERS Safety Report 11539391 (Version 1)
Quarter: 2015Q3

REPORT INFORMATION
  Report Type: Spontaneous
  Country: US (occurrence: US)
  Receive Date: 20150923
  Receipt Date: 20150923
  Transmission Date: 20151125
  Serious: Yes (Other)
  Sender: FDA-Public Use
  Company Number: US-TEVA-594417USA

PATIENT
  Age: 64 Year
  Sex: Male
  Weight: 93.07 kg

DRUGS (9)
  1. CIALIS [Concomitant]
     Active Substance: TADALAFIL
     Route: 065
  2. VITAMIN D [Concomitant]
     Active Substance: CHOLECALCIFEROL
     Route: 065
  3. COPAXONE [Suspect]
     Active Substance: GLATIRAMER ACETATE
     Indication: MULTIPLE SCLEROSIS
     Dates: start: 201506
  4. DIOVAN [Concomitant]
     Active Substance: VALSARTAN
     Route: 065
  5. CITRUCEL [Concomitant]
     Active Substance: METHYLCELLULOSE (4000 MPA.S)
     Route: 065
  6. LIPITOR [Concomitant]
     Active Substance: ATORVASTATIN CALCIUM
     Route: 065
  7. ASPIRIN. [Concomitant]
     Active Substance: ASPIRIN
     Route: 065
  8. MARINOL [Concomitant]
     Active Substance: DRONABINOL
     Route: 065
  9. METAMUCIL [Concomitant]
     Active Substance: PLANTAGO SEED
     Route: 065

REACTIONS (12)
  - Injection site pain [Unknown]
  - Insomnia [Unknown]
  - Weight decreased [Unknown]
  - Constipation [Unknown]
  - Paraesthesia [Unknown]
  - Gastrointestinal disorder [Unknown]
  - Adverse event [Unknown]
  - Gait disturbance [Unknown]
  - Multiple sclerosis relapse [Unknown]
  - Feeling abnormal [Unknown]
  - Urinary retention [Unknown]
  - Pain [Unknown]

NARRATIVE: CASE EVENT DATE: 201508
